FAERS Safety Report 4444678-5 (Version None)
Quarter: 2004Q3

REPORT INFORMATION
  Report Type: 
  Country: None (occurrence: None)
  Receive Date: 20040903
  Receipt Date: 20040826
  Transmission Date: 20050211
  Serious: Yes (Hospitalization)
  Sender: FDA-Public Use
  Company Number: 2004-BP-07343RO

PATIENT
  Age: 22 Month
  Sex: Female

DRUGS (1)
  1. MERCAPTOPURINE [Suspect]
     Dosage: POTENTIAL MAX:  86 MG/KG (2600 MG/M2) (50 MG, ONCE), PO
     Route: 048

REACTIONS (7)
  - ACCIDENTAL EXPOSURE [None]
  - HYPOCHROMIC ANAEMIA [None]
  - IRON DEFICIENCY [None]
  - NAUSEA [None]
  - NEUTROPHIL COUNT DECREASED [None]
  - OVERDOSE [None]
  - VOMITING [None]
